FAERS Safety Report 15491513 (Version 1)
Quarter: 2018Q4

REPORT INFORMATION
  Report Type: Spontaneous
  Country: RU (occurrence: RU)
  Receive Date: 20181012
  Receipt Date: 20181012
  Transmission Date: 20190205
  Serious: Yes (Other)
  Sender: FDA-Public Use
  Company Number: RU-ASTRAZENECA-2017SE22026

PATIENT
  Age: 64 Year
  Sex: Female
  Weight: 64 kg

DRUGS (5)
  1. ARIFON [Concomitant]
  2. INSULIN [Concomitant]
     Active Substance: INSULIN NOS
  3. L-THYROXIN [Concomitant]
     Active Substance: LEVOTHYROXINE SODIUM
  4. PRESTARIUM [Concomitant]
     Active Substance: PERINDOPRIL
  5. FORXIGA [Suspect]
     Active Substance: DAPAGLIFLOZIN
     Indication: TYPE 2 DIABETES MELLITUS
     Route: 048
     Dates: start: 201701

REACTIONS (3)
  - Blood pressure increased [Recovered/Resolved]
  - Arterial occlusive disease [Recovered/Resolved]
  - Hypoglycaemia [Not Recovered/Not Resolved]

NARRATIVE: CASE EVENT DATE: 201701
